FAERS Safety Report 9496288 (Version 6)
Quarter: 2013Q4

REPORT INFORMATION
  Report Type: Spontaneous
  Country: JP (occurrence: None)
  Receive Date: 20130829
  Receipt Date: 20131101
  Transmission Date: 20140711
  Serious: Yes (Death, Hospitalization, Other)
  Sender: FDA-Public Use
  Company Number: ADR-2013-01503

PATIENT
  Age: 84 Year
  Sex: Female
  Weight: 38 kg

DRUGS (1)
  1. GABALON INTRATHECAL [Suspect]
     Dosage: 100 MCG/DAY
     Route: 037

REACTIONS (2)
  - Pneumonia [None]
  - Blood pressure decreased [None]
